FAERS Safety Report 17849840 (Version 1)
Quarter: 2020Q2

REPORT INFORMATION
  Report Type: Spontaneous
  Country: FR (occurrence: FR)
  Receive Date: 20200602
  Receipt Date: 20200602
  Transmission Date: 20200714
  Serious: Yes (Life-Threatening)
  Sender: FDA-Public Use
  Company Number: NVSC2020FR151228

PATIENT
  Age: 67 Year
  Sex: Female

DRUGS (7)
  1. DEPAMIDE [Suspect]
     Active Substance: VALPROMIDE
     Indication: WRONG PATIENT RECEIVED PRODUCT
     Dosage: 2 DF, ONCE/SINGLE (TOTAL)
     Route: 048
     Dates: start: 20200124, end: 20200124
  2. MESTINON [Suspect]
     Active Substance: PYRIDOSTIGMINE BROMIDE
     Indication: WRONG PATIENT RECEIVED PRODUCT
     Dosage: 1 DF, QD
     Route: 048
     Dates: start: 20200124, end: 20200124
  3. IRBESARTAN. [Suspect]
     Active Substance: IRBESARTAN
     Indication: WRONG PATIENT RECEIVED PRODUCT
     Dosage: 150 MG, ONCE/SINGLE (TOTAL)
     Route: 048
     Dates: start: 20200124, end: 20200124
  4. PARKINANE LP [Suspect]
     Active Substance: TRIHEXYPHENIDYL HYDROCHLORIDE
     Indication: WRONG PATIENT RECEIVED PRODUCT
     Dosage: 1 DF, ONCE/SINGLE (TOTAL)
     Route: 048
     Dates: start: 20200124, end: 20200124
  5. SERESTA [Suspect]
     Active Substance: OXAZEPAM
     Indication: WRONG PATIENT RECEIVED PRODUCT
     Dosage: 1 DF, ONCE/SINGLE (TOTAL)
     Route: 048
     Dates: start: 20200124, end: 20200124
  6. DIPIPERON [Suspect]
     Active Substance: PIPAMPERONE
     Indication: WRONG PATIENT RECEIVED PRODUCT
     Dosage: 0.5 DF, ONCE/SINGLE (TOTAL)
     Route: 048
     Dates: start: 20200124, end: 20200124
  7. LAMICTAL [Suspect]
     Active Substance: LAMOTRIGINE
     Indication: WRONG PATIENT RECEIVED PRODUCT
     Dosage: 2 DF, ONCE/SINGLE (TOTAL)
     Route: 048
     Dates: start: 20200124, end: 20200124

REACTIONS (2)
  - Wrong patient received product [Recovered/Resolved]
  - Coma [Recovered/Resolved]

NARRATIVE: CASE EVENT DATE: 20200124
